FAERS Safety Report 20289157 (Version 2)
Quarter: 2023Q2

REPORT INFORMATION
  Report Type: Spontaneous
  Country: US (occurrence: US)
  Receive Date: 20220104
  Receipt Date: 20230417
  Transmission Date: 20230722
  Serious: Yes (Other)
  Sender: FDA-Public Use
  Company Number: US-GLAXOSMITHKLINE-US2021AMR264927

PATIENT

DRUGS (1)
  1. ZEJULA [Suspect]
     Active Substance: NIRAPARIB
     Indication: Product used for unknown indication
     Dosage: UNK

REACTIONS (10)
  - Blindness [Unknown]
  - Pulmonary artery thrombosis [Unknown]
  - Migraine [Unknown]
  - Abdominal discomfort [Unknown]
  - Rash [Recovered/Resolved]
  - Headache [Recovered/Resolved]
  - Visual impairment [Unknown]
  - Eye inflammation [Unknown]
  - Fatigue [Unknown]
  - Adverse drug reaction [Unknown]
